FAERS Safety Report 12598229 (Version 1)
Quarter: 2016Q3

REPORT INFORMATION
  Report Type: Not Available
  Country: None (occurrence: US)
  Receive Date: 20160726
  Receipt Date: 20160726
  Transmission Date: 20161109
  Serious: No
  Sender: FDA-Public Use
  Company Number: US-AKORN-35409

PATIENT
  Sex: Male

DRUGS (1)
  1. ATROPINE SULFATE 1% OPHTHALMIC SOLUTION, USP [Suspect]
     Active Substance: ATROPINE SULFATE

REACTIONS (3)
  - Eye pain [Unknown]
  - Eye discharge [Recovered/Resolved]
  - Abnormal sensation in eye [Unknown]
